FAERS Safety Report 18888116 (Version 1)
Quarter: 2021Q1

REPORT INFORMATION
  Report Type: Report from Study
  Country: CA (occurrence: CA)
  Receive Date: 20210212
  Receipt Date: 20210212
  Transmission Date: 20210420
  Serious: Yes (Other)
  Sender: FDA-Public Use
  Company Number: CA-JNJFOC-20210214106

PATIENT
  Age: 12 Year
  Sex: Female
  Weight: 41 kg

DRUGS (2)
  1. VENOFER [Suspect]
     Active Substance: IRON SUCROSE
     Indication: PRODUCT USED FOR UNKNOWN INDICATION
     Route: 042
  2. REMICADE [Suspect]
     Active Substance: INFLIXIMAB
     Indication: CROHN^S DISEASE
     Dosage: ON 06?FEB?2021, THE PATIENT RECEIVED 31ST DOSE OF 350MG
     Route: 042
     Dates: start: 20171025

REACTIONS (5)
  - Off label use [Unknown]
  - Drug hypersensitivity [Recovering/Resolving]
  - Abdominal pain [Unknown]
  - Product use issue [Unknown]
  - Infusion related reaction [Recovering/Resolving]

NARRATIVE: CASE EVENT DATE: 20171025
